FAERS Safety Report 5873652-7 (Version None)
Quarter: 2008Q3

REPORT INFORMATION
  Report Type: 
  Country: None (occurrence: None)
  Receive Date: 20080908
  Receipt Date: 20080903
  Transmission Date: 20090109
  Serious: Yes (Other)
  Sender: FDA-Public Use
  Company Number: A0745703A

PATIENT
  Age: 39 Year
  Sex: Male

DRUGS (4)
  1. LOVAZA [Suspect]
     Dosage: 2CAP TWICE PER DAY
     Route: 048
     Dates: start: 20080501
  2. HYDROCODONE BITARTRATE [Concomitant]
  3. LEXAPRO [Concomitant]
  4. EFFEXOR [Concomitant]

REACTIONS (4)
  - DRUG INEFFECTIVE [None]
  - LOW DENSITY LIPOPROTEIN INCREASED [None]
  - OFF LABEL USE [None]
  - PANCREATITIS RELAPSING [None]
